FAERS Safety Report 6442233-9 (Version None)
Quarter: 2009Q4

REPORT INFORMATION
  Report Type: 
  Country: None (occurrence: None)
  Receive Date: 20091116
  Receipt Date: 20091110
  Transmission Date: 20100525
  Serious: Yes (Death)
  Sender: FDA-Public Use
  Company Number: ZA-ASTRAZENECA-2009SE22754

PATIENT
  Age: 56 Year
  Sex: Female

DRUGS (6)
  1. NEXIUM [Suspect]
     Route: 048
  2. MERONEM [Suspect]
     Route: 042
  3. MAXIPIME [Concomitant]
  4. SOLU-CORTEF [Concomitant]
  5. FLUZOL [Concomitant]
  6. VFEND [Concomitant]
     Indication: OSTEOMYELITIS
     Dates: end: 20091021

REACTIONS (3)
  - DEATH [None]
  - DYSKINESIA [None]
  - TREMOR [None]
